FAERS Safety Report 8983979 (Version 1)
Quarter: 2012Q4

REPORT INFORMATION
  Report Type: Spontaneous
  Country: US (occurrence: None)
  Receive Date: 20121214
  Receipt Date: 20121214
  Transmission Date: 20130627
  Serious: Yes (Other)
  Sender: FDA-Public Use
  Company Number: 2012AP004155

PATIENT
  Age: 72 Year
  Sex: Female
  Weight: 122.47 kg

DRUGS (15)
  1. MELOXICAM TABLETS [Suspect]
     Indication: OSTEOARTHRITIS
  2. IBUPROFEN [Suspect]
  3. CELECOXIB [Suspect]
  4. ATENOLOL [Concomitant]
  5. LOSARTAN [Concomitant]
  6. HYDROCHLOROTHIAZIDE [Concomitant]
  7. SYNTHROID [Concomitant]
  8. ASPIRIN [Concomitant]
  9. CALCIUM W/VITAMIN D NOS [Concomitant]
  10. ASCORBIC ACID W/RETINOL/TOCOPHEROL [Concomitant]
  11. MULTIVITAMIN AND MINERAL [Concomitant]
  12. OMEGA 3 FISH OIL [Concomitant]
  13. GLUCOSAMINE SULFATE [Concomitant]
  14. MEGA B [Concomitant]
  15. ACETAMINOPHEN [Concomitant]

REACTIONS (10)
  - Pain [None]
  - Limb discomfort [None]
  - Musculoskeletal stiffness [None]
  - Myalgia [None]
  - Bursitis [None]
  - Renal impairment [None]
  - Blood cholesterol increased [None]
  - Cataract [None]
  - Neuropathy peripheral [None]
  - Arthropathy [None]
